FAERS Safety Report 13913793 (Version 1)
Quarter: 2017Q3

REPORT INFORMATION
  Report Type: Spontaneous
  Country: US (occurrence: US)
  Receive Date: 20170828
  Receipt Date: 20170828
  Transmission Date: 20171127
  Serious: No
  Sender: FDA-Public Use
  Company Number: US-ROCHE-1140376

PATIENT
  Sex: Female
  Weight: 86.6 kg

DRUGS (14)
  1. NUTROPIN [Suspect]
     Active Substance: SOMATROPIN
     Indication: GROWTH HORMONE DEFICIENCY
     Route: 058
  2. SERZONE [Concomitant]
     Active Substance: NEFAZODONE HYDROCHLORIDE
     Route: 048
  3. SERZONE [Concomitant]
     Active Substance: NEFAZODONE HYDROCHLORIDE
     Route: 065
  4. EFFEXOR [Concomitant]
     Active Substance: VENLAFAXINE HYDROCHLORIDE
     Route: 065
  5. ESTROGEL [Concomitant]
     Active Substance: ESTRADIOL
     Route: 065
  6. TESTODERM TTS [Concomitant]
     Active Substance: TESTOSTERONE
  7. BIAXIN [Concomitant]
     Active Substance: CLARITHROMYCIN
     Route: 065
  8. MELATONIN [Concomitant]
     Active Substance: MELATONIN
     Route: 065
  9. SYNTHROID [Concomitant]
     Active Substance: LEVOTHYROXINE SODIUM
     Route: 065
  10. AMOXIL [Concomitant]
     Active Substance: AMOXICILLIN
     Route: 065
  11. DHEA [Concomitant]
     Active Substance: PRASTERONE
     Route: 065
  12. ENTEX LA [Concomitant]
     Active Substance: GUAIFENESIN\PHENYLEPHRINE HYDROCHLORIDE
     Route: 048
  13. TESSALON [Concomitant]
     Active Substance: BENZONATATE
     Route: 065
  14. PHENERGAN [Concomitant]
     Active Substance: PROMETHAZINE HYDROCHLORIDE
     Dosage: ONE TEASPOON
     Route: 048

REACTIONS (14)
  - Oedema [Unknown]
  - Pyrexia [Unknown]
  - Chills [Unknown]
  - Dyspnoea [Unknown]
  - Seborrhoea [Unknown]
  - Cough [Unknown]
  - Acne [Unknown]
  - Weight increased [Unknown]
  - Sinusitis [Unknown]
  - Dysphonia [Unknown]
  - Hyperhidrosis [Unknown]
  - Bronchitis [Unknown]
  - Joint swelling [Unknown]
  - Sinus headache [Unknown]
